FAERS Safety Report 23759722 (Version 1)
Quarter: 2024Q2

REPORT INFORMATION
  Report Type: Report from Study
  Country: US (occurrence: US)
  Receive Date: 20240419
  Receipt Date: 20240419
  Transmission Date: 20240716
  Serious: Yes (Hospitalization)
  Sender: FDA-Public Use
  Company Number: US-ABBVIE-4755572

PATIENT
  Age: 73 Year
  Sex: Female

DRUGS (2)
  1. SKYRIZI [Suspect]
     Active Substance: RISANKIZUMAB-RZAA
     Indication: Psoriasis
     Dosage: LAST ADMIN DATE: 2022
     Route: 058
     Dates: start: 20220208
  2. SKYRIZI [Suspect]
     Active Substance: RISANKIZUMAB-RZAA
     Route: 058
     Dates: start: 20220525

REACTIONS (20)
  - Dehydration [Recovering/Resolving]
  - Pain [Recovering/Resolving]
  - Gout [Not Recovered/Not Resolved]
  - Dyspnoea [Not Recovered/Not Resolved]
  - Sinusitis [Recovering/Resolving]
  - Gout [Recovered/Resolved]
  - Fall [Recovering/Resolving]
  - Pruritus [Not Recovered/Not Resolved]
  - Pyrexia [Unknown]
  - Gout [Recovered/Resolved]
  - Limb injury [Recovering/Resolving]
  - Headache [Not Recovered/Not Resolved]
  - Psoriasis [Not Recovered/Not Resolved]
  - Cystitis [Recovering/Resolving]
  - Suspected COVID-19 [Unknown]
  - Respiratory syncytial virus infection [Unknown]
  - COVID-19 [Recovered/Resolved]
  - Pruritus [Recovered/Resolved]
  - Cough [Unknown]
  - Skin exfoliation [Unknown]

NARRATIVE: CASE EVENT DATE: 20221115
